FAERS Safety Report 6687969-X (Version None)
Quarter: 2010Q2

REPORT INFORMATION
  Report Type: 
  Country: None (occurrence: None)
  Receive Date: 20100420
  Receipt Date: 20100412
  Transmission Date: 20101027
  Serious: Yes (Other)
  Sender: FDA-Public Use
  Company Number: US-ASTRAZENECA-2009UW16525

PATIENT
  Age: 21469 Day
  Sex: Male
  Weight: 78.1 kg

DRUGS (6)
  1. SEROQUEL [Suspect]
     Dosage: 50-900 MG AT BED TIME
     Route: 048
     Dates: start: 20040505
  2. CYPROHEPTADINE HCL [Concomitant]
     Indication: NIGHTMARE
     Dosage: 4 MG TAKE FOUR AT BEDTIME AS NEEDED
     Route: 048
     Dates: start: 20080101
  3. DIAZEPAM [Concomitant]
     Indication: ANXIETY
     Dosage: 1O MG TAB TAKE ONE TABLET A DAY AS NEEDED
     Route: 048
     Dates: start: 20080101
  4. DOXEPIN HCL [Concomitant]
     Indication: SLEEP DISORDER
     Dosage: L5OMG CAP TAKE ONE AT BEDTIME AS NEEDED AND MAY REPEAT ONCE IF NEEDED
     Route: 048
     Dates: start: 20080101
  5. PRAZOSIN HCL [Concomitant]
     Dosage: 2 MG TAKE THREE AT BEDTIME
     Route: 048
  6. SERTRALINE HCL [Concomitant]
     Dosage: 1OO MG TAKE TWO AND ONE-HALF AT BEDTIME
     Route: 048

REACTIONS (3)
  - DIABETES MELLITUS [None]
  - DIABETIC FOOT [None]
  - ORGANIC ERECTILE DYSFUNCTION [None]
